FAERS Safety Report 6240364-X (Version None)
Quarter: 2009Q2

REPORT INFORMATION
  Report Type: 
  Country: None (occurrence: None)
  Receive Date: 20090623
  Receipt Date: 20080826
  Transmission Date: 20091009
  Serious: No
  Sender: FDA-Public Use
  Company Number: US-ASTRAZENECA-2008UW17550

PATIENT
  Age: 82 Year
  Sex: Male
  Weight: 70.3 kg

DRUGS (4)
  1. PULMICORT RESPULES [Suspect]
     Indication: ASTHMA
     Route: 055
  2. CLARINEX [Concomitant]
  3. CLONIDINE [Concomitant]
  4. NORVASC [Concomitant]

REACTIONS (4)
  - ABNORMAL DREAMS [None]
  - DRY MOUTH [None]
  - DYSPHONIA [None]
  - FEELING JITTERY [None]
